FAERS Safety Report 7903459-8 (Version None)
Quarter: 2011Q4

REPORT INFORMATION
  Report Type: 
  Country: None (occurrence: None)
  Receive Date: 20111109
  Receipt Date: 20111031
  Transmission Date: 20120403
  Serious: Yes (Other)
  Sender: FDA-Public Use
  Company Number: US-BAYER-2011-106150

PATIENT
  Age: 38 Year
  Sex: Male
  Weight: 84 kg

DRUGS (1)
  1. ALKA-SELTZER PLUS COLD FORMULA ORANGE ZEST [Suspect]
     Indication: SINUS CONGESTION
     Dosage: DAILY DOSE 17 DF
     Route: 048
     Dates: start: 20111030

REACTIONS (4)
  - ASTHENIA [None]
  - DIZZINESS [None]
  - NERVOUSNESS [None]
  - VOMITING [None]
